FAERS Safety Report 9604505 (Version 1)
Quarter: 2013Q4

REPORT INFORMATION
  Report Type: Spontaneous
  Country: FR (occurrence: FR)
  Receive Date: 20131008
  Receipt Date: 20131008
  Transmission Date: 20140711
  Serious: Yes (Other)
  Sender: FDA-Public Use
  Company Number: FR-ASTELLAS-2013EU008475

PATIENT
  Age: 39 Year
  Sex: Male
  Weight: 92 kg

DRUGS (8)
  1. PROGRAF [Suspect]
     Indication: RENAL TRANSPLANT
     Dosage: 7 MG, UNKNOWN/D
     Route: 065
  2. CORTICOSTEROIDS [Suspect]
     Dosage: 5 MG, UNKNOWN/D
     Route: 065
  3. CORTANCYL [Suspect]
     Indication: PROPHYLAXIS AGAINST TRANSPLANT REJECTION
     Dosage: 5 MG, UID/QD
     Route: 048
     Dates: start: 20040427
  4. CELLCEPT /01275102/ [Suspect]
     Indication: PROPHYLAXIS AGAINST TRANSPLANT REJECTION
     Dosage: 500 MG, BID
     Route: 048
     Dates: start: 20120427
  5. ARANESP [Concomitant]
     Indication: ANAEMIA
     Dosage: 30 UG, ONCE IN 15 DAYS
     Route: 058
     Dates: start: 20080803
  6. INEGY [Concomitant]
     Indication: DYSLIPIDAEMIA
     Dosage: 1 DF, UID/QD
     Route: 048
     Dates: start: 20100426
  7. MOPRAL                             /00661201/ [Concomitant]
     Indication: ULCER
     Dosage: 1 DF, UID/QD
     Route: 048
     Dates: start: 20100103
  8. SPECIAFOLDINE [Concomitant]
     Dosage: 5 MG, UID/QD
     Route: 048
     Dates: start: 20100426

REACTIONS (1)
  - Kidney fibrosis [Unknown]
